FAERS Safety Report 11376240 (Version 1)
Quarter: 2015Q3

REPORT INFORMATION
  Report Type: Spontaneous
  Country: GB (occurrence: GB)
  Receive Date: 20150813
  Receipt Date: 20150813
  Transmission Date: 20151125
  Serious: Yes (Other)
  Sender: FDA-Public Use
  Company Number: GB-TEVA-584252ACC

PATIENT
  Age: 64 Year
  Sex: Female
  Weight: 70.76 kg

DRUGS (7)
  1. PREGABALIN. [Concomitant]
     Active Substance: PREGABALIN
     Dosage: 50MG AND 75MG
  2. MIRTAZAPINE. [Suspect]
     Active Substance: MIRTAZAPINE
     Indication: INSOMNIA
     Route: 048
     Dates: start: 20150407, end: 20150429
  3. BUTRANS [Concomitant]
     Active Substance: BUPRENORPHINE
  4. IRBESARTAN. [Concomitant]
     Active Substance: IRBESARTAN
  5. PARACETAMOL [Concomitant]
     Active Substance: ACETAMINOPHEN
  6. ROSUVASTATIN [Concomitant]
     Active Substance: ROSUVASTATIN
  7. LANSOPRAZOLE. [Concomitant]
     Active Substance: LANSOPRAZOLE

REACTIONS (4)
  - Discomfort [Recovered/Resolved]
  - Feeling of body temperature change [Recovered/Resolved]
  - Nausea [Recovered/Resolved]
  - Thinking abnormal [Recovered/Resolved]

NARRATIVE: CASE EVENT DATE: 20150407
